FAERS Safety Report 9003636 (Version 1)
Quarter: 2013Q1

REPORT INFORMATION
  Report Type: Other
  Country: GB (occurrence: GB)
  Receive Date: 20130108
  Receipt Date: 20130108
  Transmission Date: 20140127
  Serious: Yes (Other)
  Sender: FDA-Public Use
  Company Number: GB-WATSON-2012-23314

PATIENT
  Sex: Male

DRUGS (3)
  1. OMEPRAZOLE (UNKNOWN) [Suspect]
     Indication: ABDOMINAL PAIN UPPER
     Dosage: 20 MG, DAILY
     Route: 065
  2. OMEPRAZOLE (UNKNOWN) [Suspect]
     Indication: ABDOMINAL DISTENSION
  3. OMEPRAZOLE (UNKNOWN) [Suspect]
     Indication: DYSPHAGIA

REACTIONS (3)
  - Sleep disorder [Unknown]
  - Abdominal pain upper [Unknown]
  - Dysphagia [Unknown]
